FAERS Safety Report 21297774 (Version 2)
Quarter: 2022Q4

REPORT INFORMATION
  Report Type: Report from Study
  Country: US (occurrence: None)
  Receive Date: 20220906
  Receipt Date: 20221018
  Transmission Date: 20230113
  Serious: Yes (Other)
  Sender: FDA-Public Use
  Company Number: US-Merck Healthcare KGaA-9244957

PATIENT
  Age: 66 Year
  Sex: Female

DRUGS (5)
  1. MAVENCLAD [Suspect]
     Active Substance: CLADRIBINE
     Indication: Multiple sclerosis
     Dosage: YEAR ONE MONTH ONE THERAPY: 20 MG ON DAYS 1 TO 2 AND 10 MG ON DAYS 3 TO 5
     Route: 048
     Dates: start: 20210419, end: 20210423
  2. MAVENCLAD [Suspect]
     Active Substance: CLADRIBINE
     Dosage: YEAR ONE MONTH TWO THERAPY: 20 MG ON DAYS 1 TO 2 AND 10 MG ON DAYS 3 TO 5
     Route: 048
     Dates: start: 202105, end: 20210523
  3. FLONASE [Concomitant]
     Active Substance: FLUTICASONE PROPIONATE
     Indication: Multiple allergies
  4. SINGULAIR [Concomitant]
     Active Substance: MONTELUKAST SODIUM
     Indication: Multiple allergies
  5. METFORMIN [Concomitant]
     Active Substance: METFORMIN HYDROCHLORIDE
     Indication: Diabetes mellitus

REACTIONS (20)
  - Urinary tract infection [Recovered/Resolved]
  - Acute kidney injury [Unknown]
  - Nephrocalcinosis [Unknown]
  - Postoperative wound infection [Recovering/Resolving]
  - Breast necrosis [Not Recovered/Not Resolved]
  - Post procedural complication [Not Recovered/Not Resolved]
  - Blood glucose increased [Unknown]
  - Renal cyst [Unknown]
  - White blood cell count decreased [Not Recovered/Not Resolved]
  - Red blood cell count decreased [Recovering/Resolving]
  - Impaired healing [Unknown]
  - Sinusitis [Unknown]
  - Eye infection [Unknown]
  - Chills [Unknown]
  - Hypotension [Unknown]
  - Dyspnoea [Unknown]
  - Cough [Not Recovered/Not Resolved]
  - Fatigue [Recovering/Resolving]
  - Asthenia [Not Recovered/Not Resolved]
  - Myalgia [Unknown]

NARRATIVE: CASE EVENT DATE: 20210501
